FAERS Safety Report 18680247 (Version 1)
Quarter: 2020Q4

REPORT INFORMATION
  Report Type: Other
  Country: IR (occurrence: IR)
  Receive Date: 20201230
  Receipt Date: 20201230
  Transmission Date: 20210114
  Serious: Yes (Hospitalization)
  Sender: FDA-Public Use
  Company Number: IR-AJANTA PHARMA USA INC.-2103626

PATIENT
  Age: 35 Year
  Sex: Female

DRUGS (3)
  1. VALPROATE SODIUM. [Suspect]
     Active Substance: VALPROATE SODIUM
  2. QUETIAPINE. [Concomitant]
     Active Substance: QUETIAPINE
  3. RISPERIDONE. [Suspect]
     Active Substance: RISPERIDONE

REACTIONS (2)
  - Drug interaction [Not Recovered/Not Resolved]
  - Hyperammonaemic encephalopathy [Not Recovered/Not Resolved]
